FAERS Safety Report 5335776-2 (Version None)
Quarter: 2007Q1

REPORT INFORMATION
  Report Type: 
  Country: None (occurrence: None)
  Receive Date: 20070322
  Receipt Date: 20070214
  Transmission Date: 20070707
  Serious: No
  Sender: FDA-Public Use
  Company Number: 2007US000392

PATIENT
  Age: 65 Year
  Sex: Female

DRUGS (1)
  1. VESICARE [Suspect]
     Indication: HYPERTONIC BLADDER
     Dosage: 5 MG, UNK, ORAL
     Route: 048

REACTIONS (2)
  - CONSTIPATION [None]
  - URINARY INCONTINENCE [None]
